FAERS Safety Report 12017061 (Version 1)
Quarter: 2016Q1

REPORT INFORMATION
  Report Type: Spontaneous
  Country: US (occurrence: US)
  Receive Date: 20160205
  Receipt Date: 20160205
  Transmission Date: 20160526
  Serious: Yes (Death, Other)
  Sender: FDA-Public Use
  Company Number: US-TAKEDA-TPA2012A03040

PATIENT

DRUGS (9)
  1. DIABETA                            /00145301/ [Concomitant]
     Dosage: 1.25 MG, UNK
     Dates: start: 2004, end: 2005
  2. DIABETA                            /00145301/ [Concomitant]
     Dosage: 1.25 MG, UNK
  3. METFORMIN HYDROCHLORIDE. [Concomitant]
     Active Substance: METFORMIN HYDROCHLORIDE
     Dosage: 800 MG, UNK
     Dates: start: 2005, end: 2005
  4. ACTOS [Suspect]
     Active Substance: PIOGLITAZONE HYDROCHLORIDE
     Indication: TYPE 2 DIABETES MELLITUS
     Dosage: 30 MG, UNK
     Route: 048
     Dates: end: 200403
  5. ACTOS [Suspect]
     Active Substance: PIOGLITAZONE HYDROCHLORIDE
     Dosage: 45 MG, UNK
     Route: 048
     Dates: start: 2005, end: 2011
  6. DIABETA                            /00145301/ [Concomitant]
     Dosage: 5 MG, UNK
     Dates: start: 2004
  7. METFORMIN HYDROCHLORIDE. [Concomitant]
     Active Substance: METFORMIN HYDROCHLORIDE
     Dosage: 850 MG, UNK
     Dates: start: 2010, end: 2011
  8. GLUCOPHAGE [Concomitant]
     Active Substance: METFORMIN HYDROCHLORIDE
     Dosage: 500 MG, UNK
     Dates: start: 1998
  9. DIABETA                            /00145301/ [Concomitant]
     Dosage: 2.5 MG, UNK

REACTIONS (2)
  - Death [Fatal]
  - Bladder cancer [Unknown]

NARRATIVE: CASE EVENT DATE: 2007
